FAERS Safety Report 4806921-X (Version None)
Quarter: 2005Q4

REPORT INFORMATION
  Report Type: 
  Country: None (occurrence: None)
  Receive Date: 20051020
  Receipt Date: 20051020
  Transmission Date: 20060501
  Serious: Yes (Death)
  Sender: FDA-Public Use
  Company Number: None

PATIENT
  Age: 36 Year
  Sex: Female
  Weight: 52.5 kg

DRUGS (7)
  1. STAVUDINE [Suspect]
     Indication: HIV INFECTION
     Dosage: 40 MG BID PO
     Route: 048
     Dates: start: 20050520, end: 20050928
  2. EFAVIRENZ [Suspect]
     Indication: HIV INFECTION
     Dosage: 500 MG QHS PO
     Route: 048
     Dates: start: 20050520, end: 20050928
  3. LAMIVUDINE [Suspect]
     Indication: HIV INFECTION
     Dosage: 150 MG BID PO
     Route: 048
     Dates: start: 20050520, end: 20050928
  4. BACTRIM [Concomitant]
  5. FLUCONAZOLE [Concomitant]
  6. RIFAFOUR [Concomitant]
  7. VITAMIN B6 [Concomitant]

REACTIONS (11)
  - ASTHENIA [None]
  - BLOOD PRESSURE DECREASED [None]
  - CARDIAC ARREST [None]
  - CREPITATIONS [None]
  - DYSPNOEA [None]
  - KUSSMAUL RESPIRATION [None]
  - LACTIC ACIDOSIS [None]
  - OXYGEN SATURATION DECREASED [None]
  - PALLOR [None]
  - RESPIRATORY RATE INCREASED [None]
  - RETROVIRAL INFECTION [None]
